FAERS Safety Report 6570239-8 (Version None)
Quarter: 2010Q1

REPORT INFORMATION
  Report Type: 
  Country: None (occurrence: None)
  Receive Date: 20100204
  Receipt Date: 20100126
  Transmission Date: 20100710
  Serious: Yes (Hospitalization)
  Sender: FDA-Public Use
  Company Number: US-JNJFOC-20100101034

PATIENT
  Age: 68 Year
  Sex: Female
  Weight: 90.72 kg

DRUGS (14)
  1. TYLENOL (CAPLET) [Suspect]
     Indication: ARTHRITIS
     Route: 048
  2. TYLENOL (CAPLET) [Suspect]
     Route: 048
  3. TYLENOL (CAPLET) [Suspect]
     Indication: FIBROMYALGIA
     Route: 048
  4. TYLENOL (CAPLET) [Suspect]
     Route: 048
  5. PLAVIX [Concomitant]
     Indication: ANTICOAGULANT THERAPY
  6. COREG [Concomitant]
     Indication: HYPERTENSION
  7. LISINOPRIL [Concomitant]
     Indication: HYPERTENSION
  8. ASPIRIN [Concomitant]
     Indication: CARDIAC DISORDER
  9. LASIX [Concomitant]
     Indication: FLUID RETENTION
  10. LIPITOR [Concomitant]
     Indication: BLOOD CHOLESTEROL INCREASED
  11. GLYBURIDE AND METFORMIN HYDROCHLORIDE [Concomitant]
     Indication: TYPE 2 DIABETES MELLITUS
     Dosage: 1 DOSE= 2.5/500 MG; 1 DOSE 3 TIMES DAILY
  12. POTASSIUM [Concomitant]
     Indication: MEDICAL DIET
  13. ONE-A-DAY MULTIVITAMINS [Concomitant]
     Indication: MEDICAL DIET
  14. VITAMIN C [Concomitant]
     Indication: MEDICAL DIET

REACTIONS (4)
  - GASTRIC DISORDER [None]
  - NAUSEA [None]
  - PRODUCT QUALITY ISSUE [None]
  - VOMITING [None]
